FAERS Safety Report 25844691 (Version 1)
Quarter: 2025Q3

REPORT INFORMATION
  Report Type: Report from Study
  Country: US (occurrence: US)
  Receive Date: 20250925
  Receipt Date: 20250925
  Transmission Date: 20251021
  Serious: No
  Sender: SUNOVION
  Company Number: US-SUMITOMO PHARMA SWITZERLAND GMBH-2025SPA012010

PATIENT
  Age: 67 Year
  Sex: Male

DRUGS (24)
  1. ORGOVYX [Suspect]
     Active Substance: RELUGOLIX
     Indication: Prostate cancer
     Route: 048
  2. ORGOVYX [Suspect]
     Active Substance: RELUGOLIX
     Route: 048
  3. AMLODIPINE [Concomitant]
     Active Substance: AMLODIPINE BESYLATE
  4. APPLE CIDER VINEGAR [Concomitant]
     Active Substance: APPLE CIDER VINEGAR
  5. ATORVASTATIN [Concomitant]
     Active Substance: ATORVASTATIN
  6. CLONAZEPAM [Concomitant]
     Active Substance: CLONAZEPAM
  7. CREATINE [Concomitant]
     Active Substance: CREATINE
  8. CALCIUM\CHOLECALCIFEROL [Concomitant]
     Active Substance: CALCIUM\CHOLECALCIFEROL
  9. MAGNESIUM [Concomitant]
     Active Substance: MAGNESIUM
  10. VITAMIN C [Concomitant]
     Active Substance: ASCORBIC ACID
  11. VITAMIN E [Concomitant]
     Active Substance: .ALPHA.-TOCOPHEROL
  12. VITAMIN D3 [Concomitant]
     Active Substance: CHOLECALCIFEROL
  13. FOLIC ACID [Concomitant]
     Active Substance: FOLIC ACID
  14. GINKGO [Concomitant]
     Active Substance: GINKGO
  15. HYALURONIC ACID [Concomitant]
     Active Substance: HYALURONIC ACID
  16. IBUPROFEN [Concomitant]
     Active Substance: IBUPROFEN
  17. LISINOPRIL [Concomitant]
     Active Substance: LISINOPRIL
  18. Neurivas [Concomitant]
  19. NIACIN [Concomitant]
     Active Substance: NIACIN
  20. OMEPRAZOLE [Concomitant]
     Active Substance: OMEPRAZOLE
  21. POTASSIUM [Concomitant]
     Active Substance: POTASSIUM
  22. TADALAFIL [Concomitant]
     Active Substance: TADALAFIL
  23. VITAMIN B12 [Concomitant]
     Active Substance: CYANOCOBALAMIN
  24. ZINC [Concomitant]
     Active Substance: ZINC

REACTIONS (5)
  - Thirst [Unknown]
  - Dizziness [Unknown]
  - Hot flush [Unknown]
  - Myalgia [Unknown]
  - Arthralgia [Unknown]
